FAERS Safety Report 15992826 (Version 1)
Quarter: 2019Q1

REPORT INFORMATION
  Report Type: Spontaneous
  Country: FR (occurrence: FR)
  Receive Date: 20190221
  Receipt Date: 20190221
  Transmission Date: 20190418
  Serious: Yes (Death)
  Sender: FDA-Public Use
  Company Number: FR-TEVA-2019-FR-1014087

PATIENT
  Age: 76 Year
  Sex: Male
  Weight: 95 kg

DRUGS (13)
  1. ATEPADENE 30 MG, GELULE (ADENOSINE PHOSPHATE\DEOXYRIBONUCLIEC ACID) [Suspect]
     Active Substance: ADENOSINE PHOSPHATE\DEOXYRIBONUCLIEC ACID
     Indication: BACK PAIN
     Dosage: 3 DOSAGE FORMS DAILY;
     Route: 048
     Dates: end: 20190116
  2. OMIX LP 0,4 MG, MICROGRANULES A LIBERATION PROLONGEE EN GELULE [Suspect]
     Active Substance: TAMSULOSIN HYDROCHLORIDE
     Indication: PRODUCT USED FOR UNKNOWN INDICATION
     Dosage: EXTENDED-RELEASE MICROGRANULES
     Route: 048
     Dates: start: 2009, end: 20190116
  3. UVEDOSE 100 000 UI, SOLUTION BUVABLE EN AMPOULE [Suspect]
     Active Substance: CHOLECALCIFEROL
     Indication: VITAMIN D DEFICIENCY
     Dosage: IN AMPOULE
     Route: 048
     Dates: end: 20190116
  4. DOLIPRANE [Suspect]
     Active Substance: ACETAMINOPHEN
     Indication: BACK PAIN
     Dosage: 6 MILLIGRAM DAILY;
     Route: 048
     Dates: end: 20190116
  5. DEDROGYL 15 MG/ 100 ML, SOLUTION BUVABLE EN GOUTTES [Suspect]
     Active Substance: CALCIFEDIOL
     Indication: PROPHYLAXIS
     Dosage: 5 GTT DAILY;
     Route: 048
     Dates: start: 2014, end: 20190116
  6. FORLAX [Suspect]
     Active Substance: POLYETHYLENE GLYCOL 4000
     Indication: CONSTIPATION
     Dosage: 2 DOSAGE FORMS DAILY;
     Route: 048
     Dates: start: 2009, end: 20190116
  7. FAMPYRA 10 MG, COMPRIME A LIBERATION PROLONGEE [Suspect]
     Active Substance: DALFAMPRIDINE
     Indication: MULTIPLE SCLEROSIS
     Dosage: EXTENDED RELEASE
     Route: 048
     Dates: start: 2013, end: 20190116
  8. LIORESAL [Suspect]
     Active Substance: BACLOFEN
     Indication: MULTIPLE SCLEROSIS
     Dosage: 60 MILLIGRAM DAILY;
     Route: 048
     Dates: end: 20190116
  9. DEROXAT 20 MG, COMPRIME PELLICULE SECABLE [Suspect]
     Active Substance: PAROXETINE HYDROCHLORIDE
     Indication: DEPRESSION
     Dosage: 1 DOSAGE FORMS DAILY; SCORED
     Route: 048
     Dates: start: 2009, end: 20190116
  10. ATENOLOL. [Suspect]
     Active Substance: ATENOLOL
     Indication: ATRIAL FIBRILLATION
     Dosage: 50 MILLIGRAM DAILY;
     Route: 048
     Dates: start: 2006, end: 20190116
  11. FLECTOR [Suspect]
     Active Substance: DICLOFENAC EPOLAMINE
     Indication: BACK PAIN
     Route: 003
     Dates: end: 20190116
  12. PREVISCAN 20 MG, COMPRIME SECABLE [Suspect]
     Active Substance: FLUINDIONE
     Indication: ATRIAL FIBRILLATION
     Dosage: 1.25 MILLIGRAM DAILY; SCORED
     Route: 048
     Dates: start: 2006, end: 20190116
  13. CELLCEPT [Suspect]
     Active Substance: MYCOPHENOLATE MOFETIL\MYCOPHENOLATE MOFETIL HYDROCHLORIDE
     Indication: MULTIPLE SCLEROSIS
     Dosage: 2 DOSAGE FORMS DAILY;
     Route: 048
     Dates: start: 2010, end: 20190116

REACTIONS (3)
  - Intracranial pressure increased [Fatal]
  - Brain herniation [Fatal]
  - Subdural haematoma [Fatal]

NARRATIVE: CASE EVENT DATE: 20190116
